FAERS Safety Report 19271424 (Version 2)
Quarter: 2021Q2

REPORT INFORMATION
  Report Type: Spontaneous
  Country: CZ (occurrence: CZ)
  Receive Date: 20210518
  Receipt Date: 20210520
  Transmission Date: 20210717
  Serious: No
  Sender: FDA-Public Use
  Company Number: CZ-ROCHE-2829683

PATIENT
  Age: 44 Year

DRUGS (2)
  1. OCREVUS [Suspect]
     Active Substance: OCRELIZUMAB
     Indication: MULTIPLE SCLEROSIS
     Dosage: 300 MG AT DAY 0 AND 14 THEN 600 MG EVERY 6 MONTHS?DATE OF LAST INFUSION: 27/AUG/2020
     Route: 042
     Dates: start: 20200813
  2. BETAFERON [Concomitant]
     Active Substance: INTERFERON BETA-1B

REACTIONS (1)
  - COVID-19 [Unknown]

NARRATIVE: CASE EVENT DATE: 20200911
